FAERS Safety Report 5414763-X (Version None)
Quarter: 2007Q3

REPORT INFORMATION
  Report Type: 
  Country: None (occurrence: None)
  Receive Date: 20070813
  Receipt Date: 20070729
  Transmission Date: 20080115
  Serious: Yes (Life-Threatening, Hospitalization, Other)
  Sender: FDA-Public Use
  Company Number: DSA_29752_2007

PATIENT
  Sex: Female

DRUGS (2)
  1. DILTIAZEM [Suspect]
     Indication: DRUG USE FOR UNKNOWN INDICATION
     Dosage: DF ORAL
     Route: 048
     Dates: end: 20070222
  2. CAPTOPRIL [Suspect]
     Indication: DRUG USE FOR UNKNOWN INDICATION
     Dosage: DF

REACTIONS (3)
  - DRUG INEFFECTIVE [None]
  - MYOCARDIAL INFARCTION [None]
  - PULMONARY THROMBOSIS [None]
